FAERS Safety Report 7974066-6 (Version None)
Quarter: 2011Q4

REPORT INFORMATION
  Report Type: 
  Country: None (occurrence: None)
  Receive Date: 20111213
  Receipt Date: 20111202
  Transmission Date: 20120403
  Serious: Yes (Life-Threatening, Hospitalization)
  Sender: FDA-Public Use
  Company Number: US-CELGENEUS-163-21880-11102585

PATIENT
  Sex: Male

DRUGS (18)
  1. REVLIMID [Suspect]
     Dosage: 25 MILLIGRAM
     Route: 048
     Dates: start: 20110913
  2. IRON [Concomitant]
     Route: 065
  3. VITAMIN D [Concomitant]
     Route: 065
  4. REVLIMID [Suspect]
     Indication: MULTIPLE MYELOMA
     Dosage: 25 MILLIGRAM
     Route: 048
     Dates: start: 20110702, end: 20110816
  5. AMBIEN [Concomitant]
     Route: 048
  6. CENTRUM SILVER [Concomitant]
     Route: 065
  7. GLUCOSAMINE [Concomitant]
     Route: 065
  8. LOVAZA [Concomitant]
     Route: 065
  9. SYMBICORT [Concomitant]
     Dosage: 160
     Route: 065
  10. SYNTHROID [Concomitant]
     Indication: HYPOTHYROIDISM
     Dosage: 200 MICROGRAM
     Route: 065
  11. B-50 COMPLEX [Concomitant]
     Route: 065
  12. DECADRON [Suspect]
     Indication: MULTIPLE MYELOMA
     Dosage: 40 MILLIGRAM
     Route: 065
     Dates: start: 20110702
  13. ACIPHEX [Concomitant]
     Dosage: 20 MILLIGRAM
     Route: 065
  14. HALOG [Concomitant]
     Route: 065
  15. PROVENTIL GENTLEHALER [Concomitant]
     Route: 065
  16. PROVENTIL [Concomitant]
     Route: 065
  17. ASPIRIN [Concomitant]
     Dosage: 325 MILLIGRAM
     Route: 065
  18. ZYRTEC [Concomitant]
     Dosage: 10 MILLIGRAM
     Route: 048

REACTIONS (2)
  - RASH [None]
  - DIVERTICULAR PERFORATION [None]
